FAERS Safety Report 16177354 (Version 2)
Quarter: 2019Q4

REPORT INFORMATION
  Report Type: Spontaneous
  Country: DE (occurrence: DE)
  Receive Date: 20190410
  Receipt Date: 20191205
  Transmission Date: 20200122
  Serious: Yes (Death, Life-Threatening, Hospitalization)
  Sender: FDA-Public Use
  Company Number: DE-ROCHE-2297277

PATIENT
  Age: 78 Year
  Sex: Female

DRUGS (8)
  1. L-THYROXINE [LEVOTHYROXINE] [Concomitant]
     Active Substance: LEVOTHYROXINE
     Route: 065
  2. LIXIANA [Concomitant]
     Active Substance: EDOXABAN TOSYLATE
     Route: 065
  3. DEKRISTOL [Concomitant]
     Active Substance: CHOLECALCIFEROL
  4. MABTHERA [Suspect]
     Active Substance: RITUXIMAB
     Indication: B-CELL LYMPHOMA
     Dosage: MOST RECENT DOSE IN /DEC/2016
     Route: 065
     Dates: start: 201610, end: 201612
  5. MOXONIDINE [Concomitant]
     Active Substance: MOXONIDINE
     Route: 065
  6. MABTHERA [Suspect]
     Active Substance: RITUXIMAB
     Indication: B-CELL LYMPHOMA
     Route: 065
     Dates: start: 20170516, end: 201811
  7. TELMISARTAN. [Concomitant]
     Active Substance: TELMISARTAN
     Route: 065
  8. RESTEX [Concomitant]
     Active Substance: BENSERAZIDE\LEVODOPA
     Route: 065

REACTIONS (4)
  - Condition aggravated [Fatal]
  - Respiratory distress [Not Recovered/Not Resolved]
  - Flushing [Not Recovered/Not Resolved]
  - Progressive multifocal leukoencephalopathy [Fatal]

NARRATIVE: CASE EVENT DATE: 201611
